FAERS Safety Report 8459183-9 (Version None)
Quarter: 2012Q2

REPORT INFORMATION
  Report Type: 
  Country: None (occurrence: None)
  Receive Date: 20120622
  Receipt Date: 20120613
  Transmission Date: 20120825
  Serious: Yes (Death)
  Sender: FDA-Public Use
  Company Number: PT-ROCHE-1079462

PATIENT
  Sex: Female

DRUGS (5)
  1. SIMVASTATIN [Concomitant]
     Indication: HYPERCHOLESTEROLAEMIA
     Dates: start: 20010101
  2. CAPTOPRIL [Concomitant]
     Indication: HYPERTENSION
     Dates: start: 20010101
  3. NIFEDIPINE [Concomitant]
     Indication: HYPERTENSION
     Dates: start: 20010101
  4. RANIBIZUMAB [Suspect]
     Indication: AGE-RELATED MACULAR DEGENERATION
     Route: 050
     Dates: start: 20111012
  5. METFORMIN HCL [Concomitant]
     Indication: DIABETES MELLITUS
     Dates: start: 20050101

REACTIONS (1)
  - ISCHAEMIC STROKE [None]
